FAERS Safety Report 14192787 (Version 1)
Quarter: 2017Q4

REPORT INFORMATION
  Report Type: Spontaneous
  Country: IT (occurrence: IT)
  Receive Date: 20171116
  Receipt Date: 20171116
  Transmission Date: 20180321
  Serious: Yes (Other)
  Sender: FDA-Public Use
  Company Number: IT-GLENMARK PHARMACEUTICALS-2017GMK029718

PATIENT
  Age: 43 Year
  Sex: Male
  Weight: 75 kg

DRUGS (14)
  1. VORICONAZOLE. [Interacting]
     Active Substance: VORICONAZOLE
     Dosage: 100 MG, BID (AT DAY 21)
     Route: 048
  2. EMTRICITABINE W/TENOFOVIR [Concomitant]
     Active Substance: EMTRICITABINE\TENOFOVIR DISOPROXIL
     Indication: CEREBRAL TOXOPLASMOSIS
     Dosage: UNK
     Route: 065
  3. ATOVAQUONE. [Concomitant]
     Active Substance: ATOVAQUONE
     Indication: CEREBRAL TOXOPLASMOSIS
     Dosage: UNK
     Route: 065
  4. TRAMADOL. [Concomitant]
     Active Substance: TRAMADOL
     Indication: NEUROPATHY PERIPHERAL
     Dosage: UNK
     Route: 065
  5. VORICONAZOLE. [Interacting]
     Active Substance: VORICONAZOLE
     Dosage: 300 MG, BID
     Route: 042
  6. AZITHROMYCIN ANHYDROUS. [Concomitant]
     Active Substance: AZITHROMYCIN ANHYDROUS
     Indication: CEREBRAL TOXOPLASMOSIS
     Dosage: UNK
     Route: 065
  7. VORICONAZOLE. [Interacting]
     Active Substance: VORICONAZOLE
     Dosage: 250 MG, BID (AT DAY 13)
     Route: 048
  8. VORICONAZOLE. [Interacting]
     Active Substance: VORICONAZOLE
     Dosage: 200 MG, BID (AT DAY 20)
     Route: 048
  9. PANTOPRAZOLE [Concomitant]
     Active Substance: PANTOPRAZOLE
     Indication: NEUROPATHY PERIPHERAL
     Dosage: UNK
     Route: 065
  10. HALOPERIDOL. [Interacting]
     Active Substance: HALOPERIDOL
     Indication: HALLUCINATION, AUDITORY
     Dosage: 1 MG, TID (AT DAY 8)
     Route: 048
  11. RALTEGRAVIR. [Concomitant]
     Active Substance: RALTEGRAVIR
     Indication: CEREBRAL TOXOPLASMOSIS
     Dosage: UNK
     Route: 065
  12. VORICONAZOLE. [Suspect]
     Active Substance: VORICONAZOLE
     Indication: PRODUCT USED FOR UNKNOWN INDICATION
     Dosage: 450 MG, QD
     Route: 042
  13. PREGABALIN. [Concomitant]
     Active Substance: PREGABALIN
     Indication: NEUROPATHY PERIPHERAL
     Dosage: UNK
     Route: 065
  14. DELORAZEPAM [Concomitant]
     Active Substance: DELORAZEPAM
     Indication: HALLUCINATION, AUDITORY
     Dosage: 1 MG, QD
     Route: 048

REACTIONS (2)
  - Drug interaction [Unknown]
  - Hepatotoxicity [Recovered/Resolved]
